FAERS Safety Report 8881243 (Version 1)
Quarter: 2012Q4

REPORT INFORMATION
  Report Type: 
  Country: CH (occurrence: CH)
  Receive Date: 20121031
  Receipt Date: 20121031
  Transmission Date: 20130627
  Serious: Yes (Hospitalization)
  Sender: FDA-Public Use
  Company Number: CH-ASTRAZENECA-2012SE81082

PATIENT
  Age: 49 Year
  Sex: Male
  Weight: 85 kg

DRUGS (3)
  1. CRESTOR [Suspect]
     Indication: HYPERLIPIDAEMIA
     Route: 048
     Dates: start: 2011, end: 20120910
  2. TELFAST [Concomitant]
     Indication: SEASONAL ALLERGY
  3. SERETIDE [Concomitant]
     Indication: SEASONAL ALLERGY

REACTIONS (3)
  - Hepatocellular injury [Recovering/Resolving]
  - Pruritus [Unknown]
  - Jaundice [Unknown]
